FAERS Safety Report 24458907 (Version 1)
Quarter: 2024Q4

REPORT INFORMATION
  Report Type: Spontaneous
  Country: CN (occurrence: CN)
  Receive Date: 20241018
  Receipt Date: 20241018
  Transmission Date: 20250114
  Serious: No
  Sender: ROCHE
  Company Number: CN-ROCHE-3526446

PATIENT
  Age: 30 Year
  Sex: Female
  Weight: 56.0 kg

DRUGS (1)
  1. MABTHERA [Suspect]
     Active Substance: RITUXIMAB
     Indication: Cold type haemolytic anaemia
     Dosage: FORM OF ADMIN TEXT : PUMP INJECTION; INJECTION
     Route: 042
     Dates: start: 20240227, end: 20240228

REACTIONS (6)
  - Tachypnoea [Recovering/Resolving]
  - Chills [Recovering/Resolving]
  - Rash [Recovering/Resolving]
  - Pain [Recovering/Resolving]
  - Pyrexia [Recovering/Resolving]
  - Off label use [Unknown]

NARRATIVE: CASE EVENT DATE: 20240227
